FAERS Safety Report 6538780-1 (Version None)
Quarter: 2010Q1

REPORT INFORMATION
  Report Type: 
  Country: None (occurrence: None)
  Receive Date: 20100115
  Receipt Date: 20100105
  Transmission Date: 20100710
  Serious: Yes (Other)
  Sender: FDA-Public Use
  Company Number: US-JNJFOC-20100102862

PATIENT
  Age: 64 Year
  Sex: Female

DRUGS (4)
  1. DOXIL [Suspect]
     Indication: OVARIAN EPITHELIAL CANCER
     Dosage: 85MG, CYCLE 2
     Route: 042
  2. DOXIL [Suspect]
     Dosage: 68MG, CYCLE 1
     Route: 042
  3. DOXIL [Suspect]
     Dosage: CYCLE 4-6, 68MG
     Route: 042
  4. DOXIL [Suspect]
     Dosage: 55MG, CYCLE 3
     Route: 042

REACTIONS (3)
  - CARBOHYDRATE ANTIGEN 125 INCREASED [None]
  - MUCOSAL INFLAMMATION [None]
  - SKIN DISORDER [None]
